FAERS Safety Report 4814434-4 (Version None)
Quarter: 2005Q4

REPORT INFORMATION
  Report Type: 
  Country: None (occurrence: None)
  Receive Date: 20051028
  Receipt Date: 20050825
  Transmission Date: 20060501
  Serious: No
  Sender: FDA-Public Use
  Company Number: 2005-08-2108

PATIENT
  Age: 70 Year
  Sex: Female

DRUGS (3)
  1. ADVAIR DISKUS 100/50 [Suspect]
     Indication: BRONCHIECTASIS
     Dosage: 1PUFF TWICE PER DAY
     Route: 055
     Dates: start: 20050701
  2. NASONEX [Concomitant]
  3. UNSPECIFIED MEDICATIONS [Concomitant]
     Route: 065

REACTIONS (1)
  - DYSGEUSIA [None]
